FAERS Safety Report 6741293-5 (Version None)
Quarter: 2010Q2

REPORT INFORMATION
  Report Type: 
  Country: None (occurrence: None)
  Receive Date: 20100526
  Receipt Date: 20100517
  Transmission Date: 20101027
  Serious: No
  Sender: FDA-Public Use
  Company Number: DE-ASTRAZENECA-2010SE19654

PATIENT
  Age: 19703 Day
  Sex: Female

DRUGS (3)
  1. PROPOFOL [Suspect]
     Indication: ANAESTHESIA
     Route: 042
     Dates: start: 20100317, end: 20100317
  2. PROPOFOL [Interacting]
     Indication: BUNION OPERATION
     Route: 042
     Dates: start: 20100317, end: 20100317
  3. ULTIVA [Interacting]
     Indication: BUNION OPERATION
     Dates: start: 20100317, end: 20100317

REACTIONS (2)
  - ACUTE PSYCHOSIS [None]
  - DRUG INTERACTION [None]
